FAERS Safety Report 14670338 (Version 2)
Quarter: 2018Q2

REPORT INFORMATION
  Report Type: Spontaneous
  Country: US (occurrence: US)
  Receive Date: 20180322
  Receipt Date: 20180622
  Transmission Date: 20180711
  Serious: No
  Sender: FDA-Public Use
  Company Number: US-ADAMAS PHARMACEUTICALS-2018ADA00057

PATIENT
  Age: 71 Year
  Sex: Female
  Weight: 64.85 kg

DRUGS (10)
  1. GOCOVRI [Suspect]
     Active Substance: AMANTADINE
     Indication: DYSKINESIA
     Dosage: 1 CAPSULES, 1X/DAY AT BEDTIME
     Dates: start: 20180105, end: 20180206
  2. SINGULAIR [Concomitant]
     Active Substance: MONTELUKAST SODIUM
  3. ENTACAPONE. [Concomitant]
     Active Substance: ENTACAPONE
  4. PRAMIPEXOLE. [Concomitant]
     Active Substance: PRAMIPEXOLE
  5. METFORMIN [Concomitant]
     Active Substance: METFORMIN HYDROCHLORIDE
     Dosage: 500 MG, 2X/DAY
  6. HYDROCHLOROTHIAZIDE. [Concomitant]
     Active Substance: HYDROCHLOROTHIAZIDE
  7. CARBIDOPA; LEVODOPA [Concomitant]
     Dosage: UNK, 5X/DAY
  8. FUROSEMIDE. [Concomitant]
     Active Substance: FUROSEMIDE
  9. ADVAIR HFA [Concomitant]
     Active Substance: FLUTICASONE PROPIONATE\SALMETEROL XINAFOATE
  10. STALEVO [Concomitant]
     Active Substance: CARBIDOPA\ENTACAPONE\LEVODOPA

REACTIONS (5)
  - Limb discomfort [Unknown]
  - Balance disorder [Not Recovered/Not Resolved]
  - Tremor [Unknown]
  - Sensory loss [Recovering/Resolving]
  - Fall [Not Recovered/Not Resolved]

NARRATIVE: CASE EVENT DATE: 201802
